FAERS Safety Report 22776740 (Version 4)
Quarter: 2023Q4

REPORT INFORMATION
  Report Type: Spontaneous
  Country: PH (occurrence: PH)
  Receive Date: 20230802
  Receipt Date: 20231011
  Transmission Date: 20240110
  Serious: Yes (Death, Hospitalization, Other)
  Sender: FDA-Public Use
  Company Number: PH-SA-SAC20230801001451

PATIENT
  Age: 24 Year
  Sex: Female
  Weight: 45 kg

DRUGS (2)
  1. CEREZYME [Suspect]
     Active Substance: IMIGLUCERASE
     Indication: Gaucher^s disease type III
     Dosage: UNK UNK, QOW
     Route: 042
     Dates: start: 20050125
  2. CEREZYME [Suspect]
     Active Substance: IMIGLUCERASE
     Dosage: 60 IU/KG, QOW
     Route: 042
     Dates: start: 20210625, end: 20221125

REACTIONS (15)
  - Anaemia [Fatal]
  - Upper gastrointestinal haemorrhage [Fatal]
  - Peptic ulcer haemorrhage [Fatal]
  - Haematemesis [Unknown]
  - Cachexia [Unknown]
  - Pallor [Unknown]
  - Respiratory distress [Unknown]
  - Unresponsive to stimuli [Unknown]
  - Dyspnoea [Unknown]
  - Abdominal pain [Unknown]
  - Face oedema [Unknown]
  - Oedema peripheral [Unknown]
  - Maternal exposure timing unspecified [Unknown]
  - Wrong technique in product usage process [Unknown]
  - Product use in unapproved indication [Unknown]

NARRATIVE: CASE EVENT DATE: 20221101
